FAERS Safety Report 5392147-0 (Version None)
Quarter: 2007Q3

REPORT INFORMATION
  Report Type: 
  Country: None (occurrence: None)
  Receive Date: 20070718
  Receipt Date: 20070718
  Transmission Date: 20080115
  Serious: No
  Sender: FDA-Public Use
  Company Number: None

PATIENT
  Sex: Female
  Weight: 75.9 kg

DRUGS (1)
  1. CYTARABINE [Suspect]
     Dosage: 16650 MG
     Dates: end: 20050115

REACTIONS (4)
  - EPISTAXIS [None]
  - MOUTH HAEMORRHAGE [None]
  - PLATELET COUNT ABNORMAL [None]
  - SKIN HAEMORRHAGE [None]
